FAERS Safety Report 10066513 (Version 1)
Quarter: 2014Q2

REPORT INFORMATION
  Report Type: Report from Study
  Country: MX (occurrence: MX)
  Receive Date: 20140408
  Receipt Date: 20140408
  Transmission Date: 20141212
  Serious: Yes (Death, Hospitalization, Other)
  Sender: FDA-Public Use
  Company Number: PHHY2014MX041906

PATIENT
  Age: 89 Year
  Sex: Female

DRUGS (4)
  1. EXFORGE [Suspect]
     Indication: HYPERTENSION
     Dosage: UNK (320/10 MG), UNK
     Route: 048
     Dates: start: 201311
  2. GALVUS MET [Suspect]
     Indication: DIABETES MELLITUS
     Dosage: 1 DF (850/50 MG), BID (1 IN MORNING AND 1 BEFORE MEAL)
     Route: 048
  3. ASPIRIN PROTEC [Concomitant]
     Dosage: 100 MG, DAILY
  4. CENTRUM [Concomitant]
     Dosage: 1 DF, DAILY
     Route: 048

REACTIONS (10)
  - Hepatic cirrhosis [Fatal]
  - Liver disorder [Fatal]
  - Intestinal obstruction [Not Recovered/Not Resolved]
  - Abdominal pain upper [Not Recovered/Not Resolved]
  - Vomiting [Not Recovered/Not Resolved]
  - Abdominal discomfort [Not Recovered/Not Resolved]
  - Renal failure [Not Recovered/Not Resolved]
  - Aspiration bronchial [Not Recovered/Not Resolved]
  - Respiratory arrest [Not Recovered/Not Resolved]
  - Hypoglycaemia [Not Recovered/Not Resolved]
